FAERS Safety Report 6395820-0 (Version None)
Quarter: 2009Q4

REPORT INFORMATION
  Report Type: 
  Country: None (occurrence: None)
  Receive Date: 20091009
  Receipt Date: 20090623
  Transmission Date: 20100525
  Serious: No
  Sender: FDA-Public Use
  Company Number: A0793294A

PATIENT
  Age: 71 Year
  Sex: Female

DRUGS (7)
  1. TYKERB [Suspect]
     Indication: BREAST CANCER
     Dosage: 1250MG PER DAY
     Route: 048
     Dates: start: 20090523
  2. XELODA [Concomitant]
  3. ATIVAN [Concomitant]
  4. LONOX [Concomitant]
  5. SYNTHROID [Concomitant]
  6. WARFARIN SODIUM [Concomitant]
  7. RAMIPRIL [Concomitant]

REACTIONS (5)
  - CRYING [None]
  - DECREASED APPETITE [None]
  - DIARRHOEA [None]
  - FATIGUE [None]
  - NAUSEA [None]
